FAERS Safety Report 7264583-9 (Version None)
Quarter: 2011Q1

REPORT INFORMATION
  Report Type: 
  Country: None (occurrence: None)
  Receive Date: 20110131
  Receipt Date: 20110125
  Transmission Date: 20110831
  Serious: Yes (Other)
  Sender: FDA-Public Use
  Company Number: US-PFIZER INC-2011018741

PATIENT
  Sex: Female

DRUGS (1)
  1. EFFEXOR XR [Suspect]
     Dosage: 300 MG, 1X/DAY
     Dates: start: 20060101

REACTIONS (10)
  - DIABETES MELLITUS [None]
  - DIZZINESS [None]
  - DIARRHOEA [None]
  - CONVULSION [None]
  - RASH PRURITIC [None]
  - SLEEP APNOEA SYNDROME [None]
  - HYPERSENSITIVITY [None]
  - VERTIGO [None]
  - TINNITUS [None]
  - SLEEP DISORDER [None]
